FAERS Safety Report 6106468-7 (Version None)
Quarter: 2009Q1

REPORT INFORMATION
  Report Type: 
  Country: None (occurrence: None)
  Receive Date: 20090306
  Receipt Date: 20090220
  Transmission Date: 20090719
  Serious: Yes (Hospitalization)
  Sender: FDA-Public Use
  Company Number: FI-ABBOTT-09P-055-0558183-00

PATIENT
  Age: 39 Year
  Sex: Female

DRUGS (5)
  1. HUMIRA [Suspect]
     Indication: RHEUMATOID ARTHRITIS
     Route: 058
     Dates: start: 20070101, end: 20090110
  2. PREDNISONE [Concomitant]
     Indication: RHEUMATOID ARTHRITIS
  3. OPTINATE [Concomitant]
     Indication: OSTEOPENIA
  4. ZOLOFT [Concomitant]
     Indication: DEPRESSION
  5. NEXIUM [Concomitant]
     Indication: GASTRIC DISORDER

REACTIONS (7)
  - ANAPHYLACTIC SHOCK [None]
  - DYSPNOEA [None]
  - ERYTHEMA [None]
  - GENERALISED ERYTHEMA [None]
  - GENERALISED OEDEMA [None]
  - PRURITUS [None]
  - SWELLING FACE [None]
